FAERS Safety Report 25067867 (Version 3)
Quarter: 2025Q4

REPORT INFORMATION
  Report Type: Spontaneous
  Country: EU (occurrence: EU)
  Receive Date: 20250312
  Receipt Date: 20251204
  Transmission Date: 20260118
  Serious: Yes (Hospitalization, Other)
  Sender: AUROBINDO
  Company Number: EU-AFSSAPS-PO2025000183

PATIENT
  Age: 71 Year
  Sex: Female
  Weight: 62 kg

DRUGS (7)
  1. ATORVASTATIN [Interacting]
     Active Substance: ATORVASTATIN
     Indication: Hypercholesterolaemia
     Dosage: 10 MILLIGRAM, ONCE A DAY
  2. ATORVASTATIN [Interacting]
     Active Substance: ATORVASTATIN
     Indication: Rhabdomyolysis
     Dosage: 40 MILLIGRAM, ONCE A DAY
     Dates: start: 20250110, end: 20250215
  3. NEORAL [Interacting]
     Active Substance: CYCLOSPORINE
     Indication: Prophylaxis against transplant rejection
     Dosage: 150 MILLIGRAM, ONCE A DAY
     Dates: start: 20250113, end: 20250120
  4. NEORAL [Interacting]
     Active Substance: CYCLOSPORINE
     Indication: Rhabdomyolysis
     Dosage: UNK
     Route: 065
  5. CYCLOSPORINE [Suspect]
     Active Substance: CYCLOSPORINE
     Indication: Prophylaxis against transplant rejection
     Dosage: 150 MILLIGRAM, ONCE A DAY
     Dates: start: 20250113, end: 20250120
  6. CYCLOSPORINE [Suspect]
     Active Substance: CYCLOSPORINE
     Dosage: UNK
     Route: 065
  7. MYCOPHENOLIC ACID [Concomitant]
     Active Substance: MYCOPHENOLIC ACID
     Indication: Renal transplant
     Dosage: UNK
     Route: 065

REACTIONS (6)
  - Ischaemic stroke [Unknown]
  - Rhabdomyolysis [Recovering/Resolving]
  - Drug interaction [Recovered/Resolved]
  - Hepatic cytolysis [Unknown]
  - Product dose omission in error [Unknown]
  - Underdose [Unknown]

NARRATIVE: CASE EVENT DATE: 20250215
